FAERS Safety Report 19485606 (Version 2)
Quarter: 2021Q3

REPORT INFORMATION
  Report Type: Spontaneous
  Country: GB (occurrence: GB)
  Receive Date: 20210702
  Receipt Date: 20210731
  Transmission Date: 20211014
  Serious: Yes (Other)
  Sender: FDA-Public Use
  Company Number: GB-DRREDDYS-SPO/UKI/21/0137071

PATIENT
  Age: 49 Year
  Sex: Female
  Weight: 84 kg

DRUGS (3)
  1. ASTRAZENECA COVID?19 VACCINE [Suspect]
     Active Substance: AZD-1222
     Indication: PRODUCT USED FOR UNKNOWN INDICATION
     Dosage: DOSE 2
     Dates: start: 20210605
  2. IBUPROFEN. [Suspect]
     Active Substance: IBUPROFEN
     Indication: SWELLING FACE
  3. OMEPRAZOLE. [Concomitant]
     Active Substance: OMEPRAZOLE
     Indication: DYSPEPSIA
     Dates: start: 20180101

REACTIONS (8)
  - Gingival swelling [Unknown]
  - Vision blurred [Unknown]
  - Lip swelling [Recovering/Resolving]
  - Headache [Recovering/Resolving]
  - Mouth ulceration [Recovering/Resolving]
  - Fatigue [Recovering/Resolving]
  - Muscular weakness [Unknown]
  - Dizziness [Recovering/Resolving]

NARRATIVE: CASE EVENT DATE: 20210611
